FAERS Safety Report 6017028-0 (Version None)
Quarter: 2008Q4

REPORT INFORMATION
  Report Type: 
  Country: None (occurrence: None)
  Receive Date: 20081223
  Receipt Date: 20081218
  Transmission Date: 20090506
  Serious: Yes (Disabling, Other)
  Sender: FDA-Public Use
  Company Number: BR-BAYER-200823708LA

PATIENT
  Age: 18 Year
  Sex: Male

DRUGS (3)
  1. BETAFERON [Suspect]
     Indication: SECONDARY PROGRESSIVE MULTIPLE SCLEROSIS
     Route: 058
     Dates: start: 20050101
  2. AZATHIOPRINE [Concomitant]
     Indication: MULTIPLE SCLEROSIS
     Dosage: TOTAL DAILY DOSE: 3 DF
     Route: 048
     Dates: start: 20060101
  3. DIPIRONA [Concomitant]
     Indication: HEADACHE
     Route: 065
     Dates: start: 19980101

REACTIONS (4)
  - HEMIPLEGIA [None]
  - INSOMNIA [None]
  - MULTIPLE SCLEROSIS RELAPSE [None]
  - SYNCOPE [None]
